FAERS Safety Report 12884882 (Version 1)
Quarter: 2016Q4

REPORT INFORMATION
  Report Type: Spontaneous
  Country: PT (occurrence: PT)
  Receive Date: 20161026
  Receipt Date: 20161026
  Transmission Date: 20170207
  Serious: Yes (Other)
  Sender: FDA-Public Use
  Company Number: PT-ASPEN PHARMA TRADING LIMITED US-AG-2016-008475

PATIENT
  Age: 37 Year
  Sex: Female

DRUGS (14)
  1. VINCRISTINE [Suspect]
     Active Substance: VINCRISTINE
     Indication: ACUTE LEUKAEMIA
     Dosage: (R1, DAY 1, 6)
     Route: 048
  2. IFOSFAMIDE. [Suspect]
     Active Substance: IFOSFAMIDE
     Indication: ACUTE LEUKAEMIA
     Dosage: (R2, DAY 1 TO 5)
     Route: 042
     Dates: start: 201504, end: 201508
  3. TIOGUANINE [Suspect]
     Active Substance: THIOGUANINE ANHYDROUS
     Indication: ACUTE LEUKAEMIA
     Dosage: (R2, DAY 1 TO 5)
     Route: 048
     Dates: start: 201504, end: 201508
  4. METHOTREXATE. [Suspect]
     Active Substance: METHOTREXATE
     Indication: ACUTE LEUKAEMIA
     Dosage: 1 G/M2/36 HOURS OR 5 G/M2/24 HOURS (R1, DAY 1; R2, DAY 1);
     Route: 042
     Dates: start: 201504, end: 201508
  5. CYTARABINE. [Suspect]
     Active Substance: CYTARABINE
     Indication: ACUTE LEUKAEMIA
     Dosage: (R1, DAY 5; R3, DAY 1, 2)
     Route: 042
     Dates: start: 201504, end: 201508
  6. VINCRISTINE [Suspect]
     Active Substance: VINCRISTINE
     Dosage: (R2)
     Route: 042
     Dates: start: 201504, end: 201508
  7. DEXAMETHASONE. [Suspect]
     Active Substance: DEXAMETHASONE
     Indication: ACUTE LEUKAEMIA
     Dosage: (R1, DAY 1 TO 5; R2, DAY 1 TO 5; R3, DAY 1 TO 5)
     Route: 048
     Dates: start: 201504, end: 201508
  8. MERCAPTOPURINE. [Suspect]
     Active Substance: MERCAPTOPURINE
     Indication: ACUTE LEUKAEMIA
     Dosage: (DAY 1 TO 5)
     Route: 048
     Dates: start: 201504, end: 201508
  9. CYTARABINE. [Suspect]
     Active Substance: CYTARABINE
     Dosage: DOSE AGE DEPENDENT (R1, DAY 1; R2, DAY 1; R3, DAY 5);
     Route: 037
     Dates: start: 201504, end: 201508
  10. DAUNORUBICIN [Suspect]
     Active Substance: DAUNORUBICIN
     Indication: ACUTE LEUKAEMIA
     Dosage: (R2, DAY 5)
     Route: 042
     Dates: start: 201504, end: 201508
  11. L-ASPARAGINASE [Suspect]
     Active Substance: ASPARAGINASE
     Indication: ACUTE LEUKAEMIA
     Dosage: 25000 UL/M2, DAILY (R1, DAY 6; R2, DAY 6; R3, DAY 6)
     Route: 030
     Dates: start: 201504, end: 201508
  12. METHOTREXATE. [Suspect]
     Active Substance: METHOTREXATE
     Indication: ACUTE LEUKAEMIA
     Dosage: DOSE AGE DEPENDENT (R1, DAY 1; R2, DAY 1; R3, DAY 5).
     Route: 037
     Dates: start: 201504, end: 201508
  13. ETOPOSIDE. [Suspect]
     Active Substance: ETOPOSIDE
     Indication: ACUTE LEUKAEMIA
     Dosage: (R3, DAY 3 TO 5)
     Route: 042
     Dates: start: 201504, end: 201508
  14. PREDNISOLONE. [Suspect]
     Active Substance: PREDNISOLONE
     Indication: ACUTE LEUKAEMIA
     Dosage: DOSE AGE DEPENDENT (R1, DAY 1; R2, DAY 1; R3, DAY 5)
     Route: 037
     Dates: start: 201504, end: 201508

REACTIONS (6)
  - Neoplasm recurrence [Unknown]
  - Sepsis [Unknown]
  - Mucosal inflammation [Unknown]
  - Aplasia [Unknown]
  - Febrile neutropenia [Unknown]
  - Hepatotoxicity [Unknown]

NARRATIVE: CASE EVENT DATE: 201607
